FAERS Safety Report 7764472-7 (Version None)
Quarter: 2011Q3

REPORT INFORMATION
  Report Type: 
  Country: None (occurrence: None)
  Receive Date: 20110919
  Receipt Date: 20110902
  Transmission Date: 20111222
  Serious: Yes (Hospitalization, Other)
  Sender: FDA-Public Use
  Company Number: 08-AUR-05153

PATIENT
  Age: 56 Year
  Sex: Male

DRUGS (3)
  1. CLOPIDOGREL [Concomitant]
  2. SIMVASTATIN [Suspect]
     Indication: PRODUCT USED FOR UNKNOWN INDICATION
     Dosage: 20 MG (20 MG, 1 IN 1 D), ORAL; (40 MG), ORAL
     Route: 048
  3. ASPIRIN [Concomitant]

REACTIONS (4)
  - MYOSITIS [None]
  - ERYTHEMA [None]
  - COMPARTMENT SYNDROME [None]
  - HAEMOGLOBINURIA [None]
